FAERS Safety Report 8322582-X (Version None)
Quarter: 2012Q2

REPORT INFORMATION
  Report Type: 
  Country: None (occurrence: None)
  Receive Date: 20120430
  Receipt Date: 20120418
  Transmission Date: 20120825
  Serious: Yes (Other)
  Sender: FDA-Public Use
  Company Number: JP-JNJFOC-20120411294

PATIENT
  Age: 42 Year
  Sex: Male

DRUGS (2)
  1. FENTANYL-100 [Suspect]
     Indication: PAIN
     Route: 062
     Dates: start: 20110201
  2. MORPHINE HYDROCHLORIDE [Suspect]
     Indication: PAIN
     Route: 065
     Dates: start: 20110301

REACTIONS (4)
  - SECONDARY HYPOGONADISM [None]
  - DECREASED APPETITE [None]
  - WEIGHT DECREASED [None]
  - LIBIDO DECREASED [None]
